FAERS Safety Report 20031583 (Version 1)
Quarter: 2021Q4

REPORT INFORMATION
  Report Type: Report from Study
  Country: JP (occurrence: JP)
  Receive Date: 20211103
  Receipt Date: 20211103
  Transmission Date: 20220303
  Serious: Yes (Hospitalization)
  Sender: FDA-Public Use
  Company Number: JP-ABBVIE-20K-087-3467152-00

PATIENT
  Age: 83 Year
  Sex: Male
  Weight: 63.6 kg

DRUGS (14)
  1. VENCLEXTA [Suspect]
     Active Substance: VENETOCLAX
     Indication: Chronic lymphocytic leukaemia
     Route: 048
     Dates: start: 20200626, end: 20200629
  2. VENCLEXTA [Suspect]
     Active Substance: VENETOCLAX
     Route: 048
     Dates: start: 20200703, end: 202007
  3. VENCLEXTA [Suspect]
     Active Substance: VENETOCLAX
     Route: 048
     Dates: start: 20200709, end: 202007
  4. VENCLEXTA [Suspect]
     Active Substance: VENETOCLAX
     Route: 048
     Dates: start: 20200722, end: 202007
  5. VENCLEXTA [Suspect]
     Active Substance: VENETOCLAX
     Route: 048
     Dates: start: 20200729, end: 2020
  6. VENCLEXTA [Suspect]
     Active Substance: VENETOCLAX
     Route: 048
     Dates: start: 20200805, end: 20210310
  7. SULFAMETHOXAZOLE AND TRIMETHOPRIM [Concomitant]
     Active Substance: SULFAMETHOXAZOLE\TRIMETHOPRIM
     Indication: Prophylaxis
     Dates: start: 20190118
  8. RITUXIMAB [Concomitant]
     Active Substance: RITUXIMAB
     Indication: Product used for unknown indication
     Dosage: (GENETICAL RECOMBINATION)
     Dates: start: 20200908, end: 2020
  9. RITUXIMAB [Concomitant]
     Active Substance: RITUXIMAB
     Dosage: (GENETICAL RECOMBINATION)
     Dates: start: 20201006, end: 2020
  10. RITUXIMAB [Concomitant]
     Active Substance: RITUXIMAB
     Dosage: (GENETICAL RECOMBINATION)
     Dates: start: 20201117, end: 2020
  11. RITUXIMAB [Concomitant]
     Active Substance: RITUXIMAB
     Dosage: (GENETICAL RECOMBINATION)
     Dates: start: 20201215, end: 2020
  12. RITUXIMAB [Concomitant]
     Active Substance: RITUXIMAB
     Dosage: (GENETICAL RECOMBINATION)
     Dates: start: 20201215
  13. RITUXIMAB [Concomitant]
     Active Substance: RITUXIMAB
     Dosage: (GENETICAL RECOMBINATION)
     Dates: start: 20210112, end: 2021
  14. RITUXIMAB [Concomitant]
     Active Substance: RITUXIMAB
     Dosage: (GENETICAL RECOMBINATION)
     Dates: start: 20210209

REACTIONS (2)
  - Pneumonia bacterial [Recovered/Resolved]
  - Neutrophil count decreased [Recovered/Resolved]

NARRATIVE: CASE EVENT DATE: 20200629
